FAERS Safety Report 6980792-8 (Version None)
Quarter: 2010Q3

REPORT INFORMATION
  Report Type: 
  Country: None (occurrence: None)
  Receive Date: 20100909
  Receipt Date: 20100825
  Transmission Date: 20110219
  Serious: Yes (Hospitalization)
  Sender: FDA-Public Use
  Company Number: AE 2010-232

PATIENT
  Age: 1 Day
  Sex: Female

DRUGS (1)
  1. CLOZAPINE [Suspect]
     Dosage: 10 G

REACTIONS (11)
  - ABDOMINAL DISTENSION [None]
  - ACIDOSIS [None]
  - ANTICHOLINERGIC SYNDROME [None]
  - CAESAREAN SECTION [None]
  - FOETAL DISTRESS SYNDROME [None]
  - GASTROINTESTINAL SOUNDS ABNORMAL [None]
  - INFLAMMATION [None]
  - LOCALISED OEDEMA [None]
  - MATERNAL DRUGS AFFECTING FOETUS [None]
  - NECROTISING COLITIS [None]
  - TENDERNESS [None]
